FAERS Safety Report 18272274 (Version 1)
Quarter: 2020Q3

REPORT INFORMATION
  Report Type: Spontaneous
  Country: US (occurrence: US)
  Receive Date: 20200916
  Receipt Date: 20200916
  Transmission Date: 20201103
  Serious: Yes (Hospitalization)
  Sender: FDA-Public Use
  Company Number: US-IRONSHORE-JOR-2020-000068

PATIENT
  Age: 11 Year
  Sex: Male

DRUGS (1)
  1. JORNAY PM EXTENDED?RELEASE [Suspect]
     Active Substance: METHYLPHENIDATE HYDROCHLORIDE
     Indication: PRODUCT USED FOR UNKNOWN INDICATION
     Dosage: 40 MILLIGRAM
     Route: 048

REACTIONS (1)
  - Abdominal migraine [Unknown]
